FAERS Safety Report 19007607 (Version 1)
Quarter: 2021Q1

REPORT INFORMATION
  Report Type: Spontaneous
  Country: US (occurrence: US)
  Receive Date: 20210315
  Receipt Date: 20210315
  Transmission Date: 20210420
  Serious: No
  Sender: FDA-Public Use
  Company Number: US-SUN PHARMACEUTICAL INDUSTRIES LTD-2020R1-261438

PATIENT
  Age: 21 Year
  Sex: Female

DRUGS (1)
  1. CLINDAMYCIN. [Suspect]
     Active Substance: CLINDAMYCIN
     Indication: ORAL INFECTION
     Dosage: UNK UNK, QID
     Route: 065

REACTIONS (8)
  - Diarrhoea [Unknown]
  - Faeces discoloured [Unknown]
  - Nausea [Unknown]
  - Arthralgia [Unknown]
  - Headache [Unknown]
  - Pallor [Unknown]
  - Weight decreased [Unknown]
  - Hypersomnia [Unknown]
